FAERS Safety Report 6415993-0 (Version None)
Quarter: 2009Q4

REPORT INFORMATION
  Report Type: 
  Country: None (occurrence: None)
  Receive Date: 20091027
  Receipt Date: 20091022
  Transmission Date: 20100525
  Serious: Yes (Death, Other)
  Sender: FDA-Public Use
  Company Number: BR-ABBOTT-09P-020-0604429-00

PATIENT
  Sex: Female

DRUGS (4)
  1. HUMIRA [Suspect]
     Indication: RHEUMATOID ARTHRITIS
     Route: 058
     Dates: start: 20090701
  2. METHOTREXATE [Suspect]
     Indication: DRUG USE FOR UNKNOWN INDICATION
     Dates: end: 20090301
  3. PENTOX [Concomitant]
     Indication: CARDIOVASCULAR DISORDER
     Dosage: 1 OR 2 TABLETS DAILY
     Route: 048
  4. METICORTEN [Concomitant]
     Indication: DYSPNOEA
     Route: 048

REACTIONS (4)
  - CARDIOMYOPATHY [None]
  - EMBOLISM [None]
  - PULMONARY HYPERTENSION [None]
  - RESPIRATORY FAILURE [None]
